FAERS Safety Report 23057067 (Version 2)
Quarter: 2025Q1

REPORT INFORMATION
  Report Type: Report from Study
  Country: US (occurrence: US)
  Receive Date: 20231012
  Receipt Date: 20250130
  Transmission Date: 20250409
  Serious: Yes (Other)
  Sender: TAKEDA
  Company Number: US-TAKEDA-2023TUS096218

PATIENT
  Age: 39 Year
  Sex: Female

DRUGS (2)
  1. GLASSIA [Suspect]
     Active Substance: .ALPHA.1-PROTEINASE INHIBITOR HUMAN
     Indication: Alpha-1 antitrypsin deficiency
  2. GLASSIA [Suspect]
     Active Substance: .ALPHA.1-PROTEINASE INHIBITOR HUMAN
     Indication: Supplementation therapy

REACTIONS (6)
  - Autoimmune disorder [Not Recovered/Not Resolved]
  - Generalised oedema [Recovering/Resolving]
  - Nightmare [Recovering/Resolving]
  - Feeling hot [Recovering/Resolving]
  - Product use issue [Unknown]
  - Insurance issue [Unknown]

NARRATIVE: CASE EVENT DATE: 20231005
